FAERS Safety Report 15674606 (Version 2)
Quarter: 2018Q4

REPORT INFORMATION
  Report Type: Spontaneous
  Country: DE (occurrence: DE)
  Receive Date: 20181130
  Receipt Date: 20181231
  Transmission Date: 20190205
  Serious: Yes (Death, Life-Threatening, Other)
  Sender: FDA-Public Use
  Company Number: DE-TEVA-2018-DE-980161

PATIENT
  Age: 83 Year
  Sex: Female
  Weight: 98 kg

DRUGS (17)
  1. L-THYROXIN /00068001/ [Concomitant]
     Active Substance: LEVOTHYROXINE
     Dosage: 100 MICROGRAM DAILY;  IN THE MORNING
     Route: 065
  2. METOPROLOL. [Concomitant]
     Active Substance: METOPROLOL
     Indication: ATRIAL FIBRILLATION
     Route: 065
  3. VENLAFAXINE HCL [Interacting]
     Active Substance: VENLAFAXINE HYDROCHLORIDE
     Dosage: 300 MILLIGRAM DAILY; 300 MG, 1X/DAY (2 DF, QD)
     Route: 065
  4. METHOTREXATE (METHOTREXATE SODIUM) [Concomitant]
     Active Substance: METHOTREXATE SODIUM
     Indication: RHEUMATOID ARTHRITIS
     Dosage: 15 MG, QWK ON MONDAYS
     Route: 065
  5. RANITIC [Concomitant]
     Active Substance: RANITIDINE HYDROCHLORIDE
     Indication: GASTRIC DISORDER
     Dosage: 300 MILLIGRAM DAILY; IN THE MORNING
     Route: 065
  6. VENLAFAXINE HCL [Suspect]
     Active Substance: VENLAFAXINE HYDROCHLORIDE
     Indication: PSYCHOTIC DISORDER
     Dosage: 37.5 MILLIGRAM DAILY;
     Route: 065
  7. AMIODARONE [Concomitant]
     Active Substance: AMIODARONE
     Indication: ATRIAL FIBRILLATION
     Route: 042
  8. CANDESARTAN/HCT [Concomitant]
     Active Substance: CANDESARTAN CILEXETIL\HYDROCHLOROTHIAZIDE
     Indication: PRODUCT USED FOR UNKNOWN INDICATION
     Dosage: IN THE MORNING
     Route: 065
  9. VENLAFAXINE HCL [Interacting]
     Active Substance: VENLAFAXINE HYDROCHLORIDE
     Dosage: 300 MILLIGRAM DAILY; 300 MG, 1X/DAY (37.5 MG, QD IN THE MORNING)
     Route: 065
  10. CLEXANE [Suspect]
     Active Substance: ENOXAPARIN SODIUM
     Indication: PRODUCT USED FOR UNKNOWN INDICATION
     Dosage: 6000 IU (INTERNATIONAL UNIT) DAILY;
     Route: 058
     Dates: start: 20180724
  11. AMLODIPINE [Concomitant]
     Active Substance: AMLODIPINE BESYLATE
     Indication: HYPERTENSION
     Dosage: 5 MILLIGRAM DAILY;  IN THE MORNING
     Route: 065
  12. SEROQUEL XR [Concomitant]
     Active Substance: QUETIAPINE FUMARATE
     Indication: PRODUCT USED FOR UNKNOWN INDICATION
     Dosage: 150 MILLIGRAM DAILY;
     Route: 065
  13. FOLIC ACID. [Concomitant]
     Active Substance: FOLIC ACID
     Indication: PRODUCT USED FOR UNKNOWN INDICATION
     Dosage: 5 MG, QWK IN THE MORNING ON TUESDAYS
     Route: 065
  14. ELIQUIS [Suspect]
     Active Substance: APIXABAN
     Indication: CEREBROVASCULAR ACCIDENT PROPHYLAXIS
     Dosage: 5 MILLIGRAM DAILY;
     Route: 065
     Dates: start: 20180713, end: 20180724
  15. CHOLECALCIFEROL [Concomitant]
     Active Substance: CHOLECALCIFEROL
     Indication: OSTEOPOROSIS
     Dosage: 1000 IU (INTERNATIONAL UNIT) DAILY; 1000 IU, QD IN THE MORNING
     Route: 065
  16. L-THYROXIN                         /00068001/ [Concomitant]
     Active Substance: LEVOTHYROXINE
     Indication: PRODUCT USED FOR UNKNOWN INDICATION
     Dosage: 125 MICROGRAM DAILY;  IN THE MORNING
     Route: 065
  17. BISOPROLOL/HYDROCHLOROTHIAZID [Concomitant]
     Indication: PRODUCT USED FOR UNKNOWN INDICATION
     Dosage: 1 DOSAGE FORMS DAILY; 1 DF=5/12.5MG, QD IN THE MORNING
     Route: 065

REACTIONS (9)
  - Urinary tract infection bacterial [Unknown]
  - Drug interaction [Fatal]
  - Acute kidney injury [Unknown]
  - Haemorrhagic diathesis [Fatal]
  - Retroperitoneal haematoma [Unknown]
  - Inflammation [Unknown]
  - Prescribed underdose [Unknown]
  - Hypertensive heart disease [Unknown]
  - Off label use [Unknown]

NARRATIVE: CASE EVENT DATE: 20180719
